FAERS Safety Report 9173687 (Version 1)
Quarter: 2013Q1

REPORT INFORMATION
  Report Type: Spontaneous
  Country: KR (occurrence: None)
  Receive Date: 20130318
  Receipt Date: 20130318
  Transmission Date: 20140127
  Serious: Yes (Life-Threatening, Other)
  Sender: FDA-Public Use
  Company Number: KR-MACLEODS PHARMA-000072

PATIENT
  Age: 58 Year
  Sex: Male

DRUGS (1)
  1. LEVOFLOXACIN [Suspect]
     Indication: PYREXIA
     Route: 048

REACTIONS (9)
  - Anaphylactic reaction [None]
  - Herpes virus infection [None]
  - Shock [None]
  - Aspartate aminotransferase increased [None]
  - Alanine aminotransferase increased [None]
  - Blood alkaline phosphatase increased [None]
  - Gamma-glutamyltransferase increased [None]
  - Blood bilirubin increased [None]
  - Bilirubin conjugated increased [None]
